FAERS Safety Report 8216213-7 (Version None)
Quarter: 2012Q1

REPORT INFORMATION
  Report Type: 
  Country: None (occurrence: None)
  Receive Date: 20120316
  Receipt Date: 20120308
  Transmission Date: 20120608
  Serious: Yes (Congenital Anomaly)
  Sender: FDA-Public Use
  Company Number: FR-GLAXOSMITHKLINE-B0786960A

PATIENT
  Sex: Female
  Weight: 2.8 kg

DRUGS (6)
  1. ARIXTRA [Suspect]
     Indication: PRODUCT USED FOR UNKNOWN INDICATION
     Route: 015
     Dates: start: 20100708, end: 20100815
  2. BACTRIM [Concomitant]
     Dosage: 2TAB PER DAY
     Route: 015
     Dates: start: 20100601, end: 20100803
  3. TRAMADOL HCL [Concomitant]
     Dosage: 200MG PER DAY
     Route: 015
     Dates: start: 20100601, end: 20100718
  4. NEURONTIN [Suspect]
     Indication: PRODUCT USED FOR UNKNOWN INDICATION
     Dosage: 800MG PER DAY
     Route: 015
     Dates: start: 20100824, end: 20100910
  5. LAMICTAL [Concomitant]
     Dosage: 50MG PER DAY
     Route: 015
     Dates: start: 20100601, end: 20100731
  6. RIFADIN [Concomitant]
     Dosage: 600MG PER DAY
     Route: 015
     Dates: start: 20100601, end: 20100803

REACTIONS (4)
  - OLIGOHYDRAMNIOS [None]
  - LIMB MALFORMATION [None]
  - CONGENITAL MUSCULOSKELETAL ANOMALY [None]
  - FOETAL EXPOSURE DURING PREGNANCY [None]
